FAERS Safety Report 7577407 (Version 24)
Quarter: 2015Q2

REPORT INFORMATION
  Report Type: Report from Study
  Country: CA (occurrence: CA)
  Receive Date: 20100909
  Receipt Date: 20150529
  Transmission Date: 20150821
  Serious: Yes (Hospitalization, Other)
  Sender: FDA-Public Use
  Company Number: PHHY2010CA58351

PATIENT
  Age: 51 Year
  Sex: Female

DRUGS (7)
  1. SANDOSTATIN LAR DEPOT [Suspect]
     Active Substance: OCTREOTIDE ACETATE
     Indication: DIARRHOEA
     Dosage: 20 MG ONCE IN MONTH
     Route: 030
     Dates: start: 20100612
  2. SANDOSTATIN LAR DEPOT [Suspect]
     Active Substance: OCTREOTIDE ACETATE
     Dosage: 30 MG, ONCE A MONTH
     Route: 030
  3. CLONIDINE. [Concomitant]
     Active Substance: CLONIDINE
     Indication: PRODUCT USED FOR UNKNOWN INDICATION
     Dosage: 0.2 MG, QD
     Route: 065
  4. SANDOSTATIN LAR DEPOT [Suspect]
     Active Substance: OCTREOTIDE ACETATE
     Dosage: 20 MG, QMO
     Route: 030
  5. SANDOSTATIN LAR DEPOT [Suspect]
     Active Substance: OCTREOTIDE ACETATE
     Dosage: 20 MG, ONCE A MONTH
     Route: 030
  6. SANDOSTATIN LAR DEPOT [Suspect]
     Active Substance: OCTREOTIDE ACETATE
     Dosage: 20 MG, ONCE A MONTH
     Route: 030
  7. SANDOSTATIN LAR DEPOT [Suspect]
     Active Substance: OCTREOTIDE ACETATE
     Dosage: 20 MG EVERY 4 WEEKS
     Route: 030
     Dates: start: 20100713, end: 20101026

REACTIONS (31)
  - Renal failure [Unknown]
  - Vomiting [Unknown]
  - Rectal haemorrhage [Not Recovered/Not Resolved]
  - Subclavian vein thrombosis [Unknown]
  - Blood pressure increased [Unknown]
  - Sepsis [Unknown]
  - Lower respiratory tract infection [Recovering/Resolving]
  - Menstrual disorder [Unknown]
  - Lethargy [Unknown]
  - Oral pain [Unknown]
  - Product use issue [Unknown]
  - Blood creatinine increased [Unknown]
  - Nasopharyngitis [Unknown]
  - Muscle spasms [Unknown]
  - Hyperhidrosis [Unknown]
  - Thrombosis [Unknown]
  - Malaise [Unknown]
  - Weight decreased [Unknown]
  - Enterococcal infection [Unknown]
  - Pain in extremity [Unknown]
  - Oral candidiasis [Unknown]
  - Anxiety [Unknown]
  - Rash [Unknown]
  - Staphylococcal infection [Unknown]
  - Urine output decreased [Unknown]
  - Device related infection [Unknown]
  - Diarrhoea [Unknown]
  - Haemorrhage [Unknown]
  - Colitis [Unknown]
  - Hot flush [Unknown]
  - Dehydration [Unknown]

NARRATIVE: CASE EVENT DATE: 201501
